FAERS Safety Report 7514006-7 (Version None)
Quarter: 2011Q2

REPORT INFORMATION
  Report Type: 
  Country: None (occurrence: None)
  Receive Date: 20110531
  Receipt Date: 20110523
  Transmission Date: 20111010
  Serious: Yes (Other)
  Sender: FDA-Public Use
  Company Number: US-SANOFI-AVENTIS-2011SA033030

PATIENT
  Age: 69 Year
  Sex: Male

DRUGS (7)
  1. PLAVIX [Suspect]
     Route: 048
     Dates: start: 20110513
  2. LIPITOR [Suspect]
     Route: 065
     Dates: end: 20110419
  3. PLAVIX [Suspect]
     Route: 048
     Dates: end: 20110419
  4. PLAVIX [Suspect]
     Indication: ANEURYSM
     Route: 048
     Dates: start: 20110402
  5. CIPRO [Concomitant]
  6. LIPITOR [Suspect]
     Dosage: DOSE WAS DECREASED BY HALF
     Route: 065
     Dates: start: 20110513
  7. OXYCONTIN [Concomitant]

REACTIONS (8)
  - ASCITES [None]
  - SCROTAL HAEMATOMA [None]
  - CONTUSION [None]
  - NIGHT SWEATS [None]
  - ACCIDENTAL OVERDOSE [None]
  - WEIGHT INCREASED [None]
  - ASTHENIA [None]
  - NAUSEA [None]
